FAERS Safety Report 4368458-4 (Version None)
Quarter: 2004Q2

REPORT INFORMATION
  Report Type: 
  Country: None (occurrence: None)
  Receive Date: 20040525
  Receipt Date: 20040517
  Transmission Date: 20050107
  Serious: Yes (Hospitalization)
  Sender: FDA-Public Use
  Company Number: TC12004A00780

PATIENT
  Age: 54 Year
  Sex: Female

DRUGS (4)
  1. ACTOS [Suspect]
     Indication: DIABETES MELLITUS NON-INSULIN-DEPENDENT
     Dosage: 15 MG (15 MG, 1  D)
     Route: 048
     Dates: end: 20030920
  2. BASEN (VOGLIBOSE) [Suspect]
     Indication: DIABETES MELLITUS NON-INSULIN-DEPENDENT
     Dosage: 0.6 MG (0.6 MG, 1 D)
     Route: 048
     Dates: start: 20030610, end: 20030920
  3. GLIMEPIRIDE [Concomitant]
  4. ATORVASTATIN CALCIUM [Concomitant]

REACTIONS (12)
  - ANGINA UNSTABLE [None]
  - ARTERIOSCLEROSIS [None]
  - BRONCHITIS ACUTE [None]
  - BUNDLE BRANCH BLOCK LEFT [None]
  - CORONARY ARTERY STENOSIS [None]
  - DIABETES MELLITUS INADEQUATE CONTROL [None]
  - GASTRIC ULCER [None]
  - GASTRITIS [None]
  - MYOCARDIAL ISCHAEMIA [None]
  - OBESITY [None]
  - UPPER RESPIRATORY TRACT INFLAMMATION [None]
  - VENTRICULAR EXTRASYSTOLES [None]
